FAERS Safety Report 8545071-6 (Version None)
Quarter: 2012Q3

REPORT INFORMATION
  Report Type: 
  Country: None (occurrence: None)
  Receive Date: 20120727
  Receipt Date: 20120123
  Transmission Date: 20120928
  Serious: Yes (Death)
  Sender: FDA-Public Use
  Company Number: US-ROCHE-1092707

PATIENT
  Sex: Female

DRUGS (3)
  1. COPEGUS [Concomitant]
     Dates: start: 20110731
  2. PEGASYS [Suspect]
     Indication: HEPATITIS C
     Dates: start: 20110731
  3. INCIVEK [Concomitant]
     Dates: start: 20110731

REACTIONS (1)
  - DEATH [None]
